FAERS Safety Report 16116650 (Version 1)
Quarter: 2019Q1

REPORT INFORMATION
  Report Type: Spontaneous
  Country: DE (occurrence: DE)
  Receive Date: 20190326
  Receipt Date: 20190326
  Transmission Date: 20190418
  Serious: Yes (Other)
  Sender: FDA-Public Use
  Company Number: DE-ASTRAZENECA-2019SE45036

PATIENT
  Sex: Female
  Weight: 68 kg

DRUGS (1)
  1. FASENRA [Suspect]
     Active Substance: BENRALIZUMAB
     Route: 065
     Dates: start: 20180701, end: 20180909

REACTIONS (5)
  - Circulatory collapse [Unknown]
  - Heart rate increased [Unknown]
  - Tremor [Unknown]
  - Headache [Unknown]
  - Blood pressure increased [Unknown]
